FAERS Safety Report 6289970-7 (Version None)
Quarter: 2009Q3

REPORT INFORMATION
  Report Type: 
  Country: None (occurrence: None)
  Receive Date: 20090730
  Receipt Date: 20081107
  Transmission Date: 20100115
  Serious: Yes (Hospitalization)
  Sender: FDA-Public Use
  Company Number: US-BRISTOL-MYERS SQUIBB COMPANY-14361661

PATIENT
  Age: 35 Year
  Sex: Female

DRUGS (2)
  1. COUMADIN [Suspect]
     Indication: HYPERCOAGULATION
  2. PLAVIX [Suspect]
     Indication: STENT PLACEMENT
     Route: 048

REACTIONS (1)
  - HAEMORRHAGE [None]
